FAERS Safety Report 5385023-0 (Version None)
Quarter: 2007Q3

REPORT INFORMATION
  Report Type: 
  Country: None (occurrence: None)
  Receive Date: 20070712
  Receipt Date: 20070709
  Transmission Date: 20080115
  Serious: Yes (Death, Hospitalization)
  Sender: FDA-Public Use
  Company Number: PHBS2007JP09914

PATIENT
  Age: 70 Year
  Sex: Female

DRUGS (3)
  1. VOLTAREN [Suspect]
     Indication: BACK PAIN
     Dosage: 25 MG/DAY
     Route: 054
     Dates: start: 20070604
  2. LOXONIN [Concomitant]
     Indication: BACK PAIN
     Dosage: 1 DF, UNK
     Route: 048
     Dates: start: 20070529
  3. PENTAGIN [Concomitant]
     Indication: BACK PAIN
     Dosage: 15 MG, UNK
     Route: 030
     Dates: start: 20070601

REACTIONS (23)
  - ANAPHYLACTIC SHOCK [None]
  - BLOOD GLUCOSE DECREASED [None]
  - CARDIAC MASSAGE [None]
  - CATHETERISATION CARDIAC [None]
  - DEPRESSED LEVEL OF CONSCIOUSNESS [None]
  - DRUG HYPERSENSITIVITY [None]
  - ELECTROCARDIOGRAM ST SEGMENT ELEVATION [None]
  - FEELING ABNORMAL [None]
  - HAEMODIALYSIS [None]
  - HEART RATE DECREASED [None]
  - HEPATIC ENZYME INCREASED [None]
  - HEPATITIS FULMINANT [None]
  - HYPERHIDROSIS [None]
  - HYPOTENSION [None]
  - LIFE SUPPORT [None]
  - METABOLIC ACIDOSIS [None]
  - MYDRIASIS [None]
  - OXYGEN SATURATION DECREASED [None]
  - OXYGEN SUPPLEMENTATION [None]
  - PALLOR [None]
  - RESPIRATORY RATE DECREASED [None]
  - TACHYPNOEA [None]
  - URINE OUTPUT DECREASED [None]
